FAERS Safety Report 8257602-4 (Version None)
Quarter: 2012Q2

REPORT INFORMATION
  Report Type: 
  Country: None (occurrence: None)
  Receive Date: 20120403
  Receipt Date: 20120327
  Transmission Date: 20120825
  Serious: Yes (Hospitalization, Other)
  Sender: FDA-Public Use
  Company Number: PHHY2012DK026364

PATIENT
  Sex: Male

DRUGS (6)
  1. LANTUS [Concomitant]
     Indication: DIABETES MELLITUS
  2. METHYLPHENIDATE HCL [Concomitant]
     Indication: FATIGUE
  3. ASPIRIN [Concomitant]
     Indication: THROMBOSIS PROPHYLAXIS
  4. SIMVASTATIN [Concomitant]
     Indication: HYPERCHOLESTEROLAEMIA
  5. BUPRENORPHINE HCL [Concomitant]
     Indication: PAIN
  6. RAMIPRIL [Suspect]
     Indication: CARDIOVASCULAR DISORDER
     Dosage: 2 DF, QD
     Route: 048
     Dates: end: 20120307

REACTIONS (5)
  - BLOOD CREATININE INCREASED [None]
  - PNEUMONIA [None]
  - DIABETES MELLITUS INADEQUATE CONTROL [None]
  - GLOMERULAR FILTRATION RATE ABNORMAL [None]
  - HYPERKALAEMIA [None]
